FAERS Safety Report 17212958 (Version 1)
Quarter: 2019Q4

REPORT INFORMATION
  Report Type: Spontaneous
  Country: US (occurrence: US)
  Receive Date: 20191205
  Receipt Date: 20191205
  Transmission Date: 20200122
  Serious: Yes (Hospitalization)
  Sender: FDA-Public Use
  Company Number: None

PATIENT
  Age: 72 Year
  Sex: Female

DRUGS (16)
  1. DICLOFENAC TOP GEL [Concomitant]
  2. BISACODYL. [Concomitant]
     Active Substance: BISACODYL
  3. LEVOTHYROXINE. [Concomitant]
     Active Substance: LEVOTHYROXINE
  4. FERROUS SULFATE. [Concomitant]
     Active Substance: FERROUS SULFATE
  5. WARFARIN [Concomitant]
     Active Substance: WARFARIN
  6. SERTRALINE [Concomitant]
     Active Substance: SERTRALINE HYDROCHLORIDE
  7. DOCUSATE SODIUM. [Concomitant]
     Active Substance: DOCUSATE SODIUM
  8. ADEMPAS [Suspect]
     Active Substance: RIOCIGUAT
     Indication: PULMONARY EMBOLISM
     Route: 048
     Dates: start: 201701
  9. SPIRONOLACTONE. [Concomitant]
     Active Substance: SPIRONOLACTONE
  10. ASCORBIC ACID. [Concomitant]
     Active Substance: ASCORBIC ACID
  11. FUROSEMIDE. [Concomitant]
     Active Substance: FUROSEMIDE
  12. IPRATROPIUM INHL SOLN [Concomitant]
  13. LACTULOSE. [Concomitant]
     Active Substance: LACTULOSE
  14. SENNA [Concomitant]
     Active Substance: SENNA LEAF\SENNOSIDES\SENNOSIDES A AND B
  15. MVI [Concomitant]
     Active Substance: VITAMINS
  16. MORPHINE [Concomitant]
     Active Substance: MORPHINE

REACTIONS (3)
  - Presyncope [None]
  - Fluid overload [None]
  - Acute respiratory failure [None]

NARRATIVE: CASE EVENT DATE: 20191119
